FAERS Safety Report 4699422-3 (Version None)
Quarter: 2005Q2

REPORT INFORMATION
  Report Type: 
  Country: None (occurrence: None)
  Receive Date: 20050622
  Receipt Date: 20050610
  Transmission Date: 20051028
  Serious: Yes (Hospitalization)
  Sender: FDA-Public Use
  Company Number: GXKR2005FR00463

PATIENT
  Age: 87 Year
  Sex: Male

DRUGS (6)
  1. RIMACTANE [Suspect]
     Indication: STREPTOCOCCAL INFECTION
     Dosage: 1800 MG, QD, ORAL
     Route: 048
     Dates: start: 20041030
  2. CLAMOXYL (AMOXICILLIN TRHIHYDRATE) [Suspect]
     Indication: STREPTOCOCCAL INFECTION
     Dosage: 8 G, QD, ORAL
     Route: 048
     Dates: start: 20041030
  3. OMEPRAZOLE [Suspect]
     Dosage: 40 MG, QD, ORAL
     Route: 048
     Dates: start: 20030101
  4. GLYBURIDE [Suspect]
     Dosage: 2.5 MG, QD; ORAL
     Route: 048
     Dates: start: 20000101
  5. ACETAMINOPHEN [Suspect]
     Dosage: 3 G, QD, ORAL
     Route: 048
     Dates: start: 19990101
  6. OMIX (TAMSULOSIN HYDROCHLORIDE) [Suspect]
     Dosage: 0.4 MG , QD, ORAL
     Route: 048
     Dates: start: 19990101

REACTIONS (5)
  - CYTOLYTIC HEPATITIS [None]
  - HAEMOGLOBIN DECREASED [None]
  - HEPATITIS CHOLESTATIC [None]
  - LYMPHOPENIA [None]
  - PLATELET COUNT INCREASED [None]
